FAERS Safety Report 5024123-1 (Version None)
Quarter: 2006Q2

REPORT INFORMATION
  Report Type: 
  Country: None (occurrence: None)
  Receive Date: 20060607
  Receipt Date: 20060525
  Transmission Date: 20061013
  Serious: Yes (Other)
  Sender: FDA-Public Use
  Company Number: 2006RR-02437

PATIENT
  Age: 48 Year
  Sex: Male

DRUGS (1)
  1. METFORMIN HCL [Suspect]
     Indication: DIABETES MELLITUS
     Dosage: 500 MG, TID

REACTIONS (5)
  - ACUTE PRERENAL FAILURE [None]
  - DRUG LEVEL INCREASED [None]
  - GASTROENTERITIS [None]
  - LACTIC ACIDOSIS [None]
  - RESPIRATORY FAILURE [None]
